FAERS Safety Report 23426574 (Version 2)
Quarter: 2024Q1

REPORT INFORMATION
  Report Type: Report from Study
  Country: BR (occurrence: BR)
  Receive Date: 20240122
  Receipt Date: 20240124
  Transmission Date: 20240410
  Serious: Yes (Death, Other)
  Sender: FDA-Public Use
  Company Number: BR-AstraZeneca-2024A014689

PATIENT
  Age: 128 Day
  Sex: Female
  Weight: 4.8 kg

DRUGS (4)
  1. SYNAGIS [Suspect]
     Active Substance: PALIVIZUMAB
     Indication: Antiviral prophylaxis
     Route: 030
     Dates: start: 202305, end: 202307
  2. PROVIT [Concomitant]
     Indication: Product used for unknown indication
  3. OXYGEN [Concomitant]
     Active Substance: OXYGEN
     Indication: Product used for unknown indication
  4. DIPYRONE [Concomitant]
     Active Substance: DIPYRONE
     Indication: Oral herpes

REACTIONS (4)
  - Respiratory arrest [Fatal]
  - Pyrexia [Fatal]
  - Blood glucose increased [Fatal]
  - Pancreatic disorder [Fatal]

NARRATIVE: CASE EVENT DATE: 20230827
